FAERS Safety Report 4548443-X (Version None)
Quarter: 2005Q1

REPORT INFORMATION
  Report Type: 
  Country: None (occurrence: None)
  Receive Date: 20050106
  Receipt Date: 20050106
  Transmission Date: 20050727
  Serious: Yes (Disabling)
  Sender: FDA-Public Use
  Company Number: None

PATIENT
  Age: 74 Year
  Sex: Male
  Weight: 103.8737 kg

DRUGS (7)
  1. DEMADEX [Suspect]
     Indication: OEDEMA PERIPHERAL
     Dosage: ONE 10MG TABLET DAILY
     Dates: start: 20041017, end: 20041223
  2. ATENOLOL [Concomitant]
  3. NORVASC [Concomitant]
  4. INSPRA [Concomitant]
  5. ZOCOR [Concomitant]
  6. XANAX [Concomitant]
  7. ACCUPRIL [Concomitant]

REACTIONS (1)
  - DEAFNESS [None]
